FAERS Safety Report 23023839 (Version 1)
Quarter: 2023Q4

REPORT INFORMATION
  Report Type: Spontaneous
  Country: GB (occurrence: GB)
  Receive Date: 20231003
  Receipt Date: 20231003
  Transmission Date: 20240110
  Serious: Yes (Other)
  Sender: FDA-Public Use
  Company Number: None

PATIENT

DRUGS (4)
  1. IBUPROFEN [Suspect]
     Active Substance: IBUPROFEN
     Indication: Pain
     Dosage: 400NG TDS; ;
     Route: 065
     Dates: start: 20230802, end: 20230815
  2. CITALOPRAM [Suspect]
     Active Substance: CITALOPRAM HYDROBROMIDE
     Dosage: 40MG ; ;
     Dates: start: 20230705
  3. PRAMIPEXOLE [Suspect]
     Active Substance: PRAMIPEXOLE
     Dates: start: 20230616
  4. RAMIPRIL [Suspect]
     Active Substance: RAMIPRIL
     Dosage: 10MG ; ;
     Dates: start: 20180406

REACTIONS (2)
  - Heavy menstrual bleeding [Recovering/Resolving]
  - Postmenopausal haemorrhage [Unknown]

NARRATIVE: CASE EVENT DATE: 20230815
